FAERS Safety Report 5224950-1 (Version None)
Quarter: 2007Q1

REPORT INFORMATION
  Report Type: 
  Country: None (occurrence: None)
  Receive Date: 20070126
  Receipt Date: 20070115
  Transmission Date: 20070707
  Serious: Yes (Hospitalization)
  Sender: FDA-Public Use
  Company Number: HQWYE733617JAN07

PATIENT
  Age: 33 Year
  Sex: Female

DRUGS (3)
  1. EFFEXOR [Suspect]
     Dosage: ^OVERDOSE AMOUNT 1000 MG^
     Route: 048
     Dates: start: 19981001, end: 19981001
  2. CLORAZEPATE DIPOTASSIUM [Suspect]
     Dosage: ^OVERDOSE AMOUNT 300 MG^
     Dates: start: 19981001, end: 19981001
  3. LORAZEPAM [Suspect]
     Dosage: ^OVERDOSE AMOUNT 50 MG^
     Dates: start: 19981001, end: 19981001

REACTIONS (5)
  - AGITATION [None]
  - ALCOHOL POISONING [None]
  - MYDRIASIS [None]
  - OVERDOSE [None]
  - SOMNOLENCE [None]
